APPROVED DRUG PRODUCT: METHYLPHENIDATE HYDROCHLORIDE
Active Ingredient: METHYLPHENIDATE HYDROCHLORIDE
Strength: 36MG
Dosage Form/Route: TABLET, EXTENDED RELEASE;ORAL
Application: A202608 | Product #002 | TE Code: BX
Applicant: SPECGX LLC
Approved: Dec 28, 2012 | RLD: No | RS: No | Type: RX